FAERS Safety Report 7440853-6 (Version None)
Quarter: 2011Q2

REPORT INFORMATION
  Report Type: 
  Country: None (occurrence: None)
  Receive Date: 20110427
  Receipt Date: 20090528
  Transmission Date: 20111010
  Serious: Yes (Death, Hospitalization, Other)
  Sender: FDA-Public Use
  Company Number: US-BAYER-200921584NA

PATIENT
  Age: 76 Year
  Sex: Female
  Weight: 22.041 kg

DRUGS (47)
  1. VERSED [Concomitant]
     Dosage: 2 MG, UNK
     Route: 042
     Dates: start: 20051025, end: 20051025
  2. ANCEF [Concomitant]
     Dosage: UNK
     Route: 042
     Dates: start: 20051023
  3. VANCOMYCIN [Concomitant]
     Dosage: UNK
     Route: 042
     Dates: start: 20051024
  4. VANCOMYCIN [Concomitant]
     Dosage: 1 G, UNK
     Route: 042
     Dates: start: 20051025, end: 20051025
  5. CORTISOL [Concomitant]
     Dosage: 125 MG, UNK
     Route: 042
     Dates: start: 20051024
  6. DILTIAZEM [Concomitant]
     Dosage: 10 MG, UNK
     Route: 042
     Dates: start: 20051025, end: 20051025
  7. INSULIN [Concomitant]
     Dosage: TITRATED
     Route: 042
     Dates: start: 20051025
  8. RED BLOOD CELLS [Concomitant]
     Dosage: 4 U, UNK
     Dates: start: 20051025
  9. IBUPROFEN [Concomitant]
     Dosage: UNK UNK, PRN (LONG TERM USE)
     Route: 048
  10. LASIX [Concomitant]
     Dosage: UNK
     Route: 042
     Dates: start: 20051023
  11. DIGOXIN [Concomitant]
     Dosage: 0.25 MG, UNK
     Route: 042
     Dates: start: 20051024
  12. ROCURONIUM [Concomitant]
     Dosage: 200 MG, UNK
     Route: 042
     Dates: start: 20051025, end: 20051025
  13. PENTOTHAL [Concomitant]
     Dosage: 600 MG, UNK
     Route: 042
     Dates: start: 20051025, end: 20051025
  14. TYLENOL REGULAR [Concomitant]
     Dosage: UNK
     Route: 048
     Dates: start: 20051022
  15. LEVAQUIN [Concomitant]
     Dosage: UNK
     Route: 042
     Dates: start: 20051024
  16. SEVOFLURANE [Concomitant]
     Dosage: TITRATED, UNK
     Route: 055
     Dates: start: 20051025, end: 20051025
  17. PLATELETS [Concomitant]
     Dosage: 10 U, UNK
     Dates: start: 20051022
  18. TYLENOL REGULAR [Concomitant]
     Dosage: UNK
     Route: 054
     Dates: start: 20051022
  19. TRASYLOL [Suspect]
     Indication: CORONARY ARTERY BYPASS
     Dosage: 200 ML, (PUMP PRIME)
     Route: 042
     Dates: start: 20051025, end: 20051025
  20. PRAVACHOL [Concomitant]
     Dosage: 40 MG, QD
     Route: 048
  21. TRASYLOL [Suspect]
     Dosage: 200 ML (LOADING)
     Route: 042
     Dates: start: 20051025, end: 20051025
  22. LOTENSIN [Concomitant]
     Dosage: 40 MG, QD LONG TERM USE
     Route: 048
  23. TOPROL-XL [Concomitant]
     Dosage: 50 MG, QD LONG TERM USE
     Route: 048
  24. ACETYLSALICYLIC ACID SRT [Concomitant]
     Dosage: VARIED DOSE DAILY, LONG TERM USE
     Route: 048
  25. PROTONIX [Concomitant]
     Dosage: UNK
     Route: 042
     Dates: start: 20051021
  26. AMIODARONE [Concomitant]
     Dosage: UNK
     Route: 042
     Dates: start: 20051023
  27. ZOSYN [Concomitant]
     Dosage: UNK
     Route: 042
     Dates: start: 20051024
  28. OMNIPAQUE 140 [Concomitant]
     Dosage: 250 ML. UNK
     Dates: start: 20050811
  29. HYDROCHLOROTHIAZIDE [Concomitant]
     Dosage: 25 MG, QD LONG TERM USE
     Route: 048
  30. VERSED [Concomitant]
     Dosage: UNK
     Route: 042
     Dates: start: 20051021
  31. MORPHINE [Concomitant]
     Dosage: UNK
     Route: 042
     Dates: start: 20051021
  32. NITROGLYCERIN [Concomitant]
     Dosage: TITRATED, UNK
     Route: 042
     Dates: start: 20051021
  33. HEPARIN [Concomitant]
     Dosage: 25000 U, UNK
     Route: 042
     Dates: start: 20051025, end: 20051025
  34. PRIMACOR [Concomitant]
     Dosage: 40 MCG/KG/MIN
     Route: 042
     Dates: start: 20051025
  35. FRESH FROZEN PLASMA [Concomitant]
     Dosage: 2 U, UNK
     Dates: start: 20051022
  36. PLAVIX [Concomitant]
     Dosage: 75 MG, QD LONG TERM USE
     Route: 048
  37. INTEGRILIN [Concomitant]
     Dosage: 2 MCG/KG/MIN
     Route: 042
     Dates: start: 20051021, end: 20051022
  38. DOPAMINE HCL [Concomitant]
     Dosage: UNK
     Route: 042
     Dates: start: 20051023
  39. ATIVAN [Concomitant]
     Dosage: UNK
     Route: 042
     Dates: start: 20051024
  40. LEVOPHED [Concomitant]
     Dosage: 5 MCG/MIN
     Route: 042
     Dates: start: 20051025
  41. OMNIPAQUE 140 [Concomitant]
     Dosage: 100 ML, UNK
     Dates: start: 20051022
  42. RED BLOOD CELLS [Concomitant]
     Dosage: 3 U, UNK
     Dates: start: 20051021
  43. RED BLOOD CELLS [Concomitant]
     Dosage: 2 U, UNK
     Dates: start: 20051022
  44. PLATELETS [Concomitant]
     Dosage: 10 U, UNK
     Dates: start: 20051025
  45. TRASYLOL [Suspect]
     Dosage: 50 ML/HR (INFUSION)
     Route: 042
     Dates: start: 20051025, end: 20051025
  46. PREMARIN [Concomitant]
     Dosage: 0.625 MG, QOD LONG TERM USE
     Route: 048
  47. PROTAMINE SULFATE [Concomitant]
     Dosage: 350 MG, UNK
     Route: 042
     Dates: start: 20051025, end: 20051025

REACTIONS (6)
  - UNEVALUABLE EVENT [None]
  - PAIN [None]
  - RENAL FAILURE ACUTE [None]
  - INJURY [None]
  - RENAL FAILURE [None]
  - RENAL INJURY [None]
